FAERS Safety Report 8274121-X (Version None)
Quarter: 2012Q2

REPORT INFORMATION
  Report Type: 
  Country: None (occurrence: None)
  Receive Date: 20120406
  Receipt Date: 20120406
  Transmission Date: 20120825
  Serious: Yes (Hospitalization)
  Sender: FDA-Public Use
  Company Number: None

PATIENT
  Age: 69 Year
  Sex: Female

DRUGS (1)
  1. PROLIA [Suspect]
     Dosage: 60MG EVERY 6 MONTHS SUBCUTANEOUS
     Route: 058
     Dates: start: 20120322

REACTIONS (3)
  - ARTERIAL OCCLUSIVE DISEASE [None]
  - TACHYCARDIA [None]
  - PYREXIA [None]
